FAERS Safety Report 15627107 (Version 1)
Quarter: 2018Q4

REPORT INFORMATION
  Report Type: Spontaneous
  Country: US (occurrence: US)
  Receive Date: 20181116
  Receipt Date: 20181116
  Transmission Date: 20190205
  Serious: No
  Sender: FDA-Public Use
  Company Number: US-GLAXOSMITHKLINE-US2018204630

PATIENT
  Age: 41 Year
  Sex: Female

DRUGS (1)
  1. ABREVA [Suspect]
     Active Substance: DOCOSANOL
     Indication: ORAL HERPES
     Dosage: UNK
     Dates: start: 20181024, end: 20181029

REACTIONS (7)
  - Lip erythema [Unknown]
  - Lip pruritus [Unknown]
  - Off label use [Unknown]
  - Hypersensitivity [Unknown]
  - Incorrect product administration duration [Unknown]
  - Cheilitis [Unknown]
  - Dermatitis [Unknown]

NARRATIVE: CASE EVENT DATE: 20181028
